FAERS Safety Report 8409754-0 (Version None)
Quarter: 2012Q2

REPORT INFORMATION
  Report Type: 
  Country: None (occurrence: None)
  Receive Date: 20120529
  Receipt Date: 20120514
  Transmission Date: 20120825
  Serious: Yes (Other)
  Sender: FDA-Public Use
  Company Number: US-1191878

PATIENT
  Sex: Female

DRUGS (1)
  1. TRAVATAN [Suspect]
     Indication: INTRAOCULAR PRESSURE INCREASED
     Dosage: OPHTHALMIC
     Route: 047
     Dates: end: 20120101

REACTIONS (4)
  - MIGRAINE [None]
  - VITH NERVE PARALYSIS [None]
  - PHOTOPSIA [None]
  - SENSATION OF FOREIGN BODY [None]
